FAERS Safety Report 12215736 (Version 5)
Quarter: 2016Q2

REPORT INFORMATION
  Report Type: Spontaneous
  Country: US (occurrence: US)
  Receive Date: 20160328
  Receipt Date: 20160509
  Transmission Date: 20160815
  Serious: Yes (Death, Life-Threatening, Hospitalization)
  Sender: FDA-Public Use
  Company Number: US-UNITED THERAPEUTICS-UNT-2016-004926

PATIENT
  Age: 84 Year
  Sex: Female
  Weight: 82.54 kg

DRUGS (4)
  1. REMODULIN [Suspect]
     Active Substance: TREPROSTINIL
     Dosage: 0.0488 ?G/KG, CONTINUING
     Route: 041
     Dates: start: 20160414
  2. REMODULIN [Suspect]
     Active Substance: TREPROSTINIL
     Indication: PULMONARY ARTERIAL HYPERTENSION
     Dosage: 0.055 ?G/KG, CONTINUING
     Route: 041
     Dates: start: 201603
  3. WARFARIN [Concomitant]
     Active Substance: WARFARIN
     Indication: PRODUCT USED FOR UNKNOWN INDICATION
  4. ADCIRCA [Concomitant]
     Active Substance: TADALAFIL
     Indication: PRODUCT USED FOR UNKNOWN INDICATION

REACTIONS (15)
  - Death [Fatal]
  - Urosepsis [Unknown]
  - Abdominal pain [Unknown]
  - Fatigue [Unknown]
  - Fall [Unknown]
  - Atrial fibrillation [Unknown]
  - Hypoxia [Unknown]
  - Faeces soft [Unknown]
  - Acute kidney injury [Unknown]
  - Nausea [Unknown]
  - Vomiting [Unknown]
  - Flushing [Unknown]
  - Loss of consciousness [Unknown]
  - Hallucination [Unknown]
  - Hypotension [Unknown]

NARRATIVE: CASE EVENT DATE: 201603
